FAERS Safety Report 25336430 (Version 1)
Quarter: 2025Q2

REPORT INFORMATION
  Report Type: Spontaneous
  Country: US (occurrence: US)
  Receive Date: 20250520
  Receipt Date: 20250520
  Transmission Date: 20250716
  Serious: Yes (Other)
  Sender: INSUD PHARMA
  Company Number: US-INSUD PHARMA-2505US03533

PATIENT

DRUGS (1)
  1. MEDROXYPROGESTERONE ACETATE [Suspect]
     Active Substance: MEDROXYPROGESTERONE ACETATE
     Indication: Contraception
     Route: 030
     Dates: start: 2003, end: 2023

REACTIONS (3)
  - Olfactory groove meningioma [Unknown]
  - Meningioma [Unknown]
  - Neurological symptom [Unknown]

NARRATIVE: CASE EVENT DATE: 20191101
